FAERS Safety Report 6608634-0 (Version None)
Quarter: 2010Q1

REPORT INFORMATION
  Report Type: 
  Country: None (occurrence: None)
  Receive Date: 20100226
  Receipt Date: 20100226
  Transmission Date: 20100710
  Serious: No
  Sender: FDA-Public Use
  Company Number: None

PATIENT
  Age: 20 Year
  Sex: Male
  Weight: 87.9978 kg

DRUGS (6)
  1. CLOZAPINE [Suspect]
     Dosage: 75MG PO
     Route: 048
  2. ALPRAZOLAM [Suspect]
     Dosage: 3MG PO
     Route: 048
  3. EFFEXOR [Concomitant]
  4. PALIPERIDONE [Concomitant]
  5. DIPHENHYDRAMINE HCL [Concomitant]
  6. OMEGA 3 OIL [Concomitant]

REACTIONS (1)
  - NO ADVERSE EVENT [None]
